FAERS Safety Report 19030692 (Version 1)
Quarter: 2021Q1

REPORT INFORMATION
  Report Type: Spontaneous
  Country: US (occurrence: US)
  Receive Date: 20210319
  Receipt Date: 20210319
  Transmission Date: 20210420
  Serious: Yes (Other)
  Sender: FDA-Public Use
  Company Number: US-RECGATEWAY-2021000940

PATIENT
  Age: 13 Year
  Sex: Female

DRUGS (1)
  1. UNSPECIFIED ASPARAGINASE [Suspect]
     Active Substance: ASPARAGINASE
     Indication: ACUTE LYMPHOCYTIC LEUKAEMIA
     Route: 065

REACTIONS (5)
  - Type 1 diabetes mellitus [Unknown]
  - Hyperbilirubinaemia [Unknown]
  - Pancreatitis necrotising [Unknown]
  - Iron overload [Unknown]
  - Transaminases increased [Unknown]
